FAERS Safety Report 8747422 (Version 2)
Quarter: 2013Q1

REPORT INFORMATION
  Report Type: Spontaneous
  Country: FR (occurrence: FR)
  Receive Date: 20120827
  Receipt Date: 20130215
  Transmission Date: 20140127
  Serious: Yes (Death, Hospitalization)
  Sender: FDA-Public Use
  Company Number: FR-JNJFOC-20120811814

PATIENT
  Age: 39 Year
  Sex: Female

DRUGS (12)
  1. PREZISTA [Suspect]
     Indication: HIV INFECTION
     Dosage: 0-0-2
     Route: 048
     Dates: start: 20120113, end: 20120802
  2. INTELENCE [Suspect]
     Indication: HIV INFECTION
     Dosage: 0-0-4
     Route: 048
     Dates: start: 20120113, end: 20120802
  3. INTERLEUKINS [Suspect]
     Indication: PROGRESSIVE MULTIFOCAL LEUKOENCEPHALOPATHY
     Route: 058
     Dates: start: 20120705
  4. INTERLEUKINS [Suspect]
     Indication: PROGRESSIVE MULTIFOCAL LEUKOENCEPHALOPATHY
     Route: 058
     Dates: start: 20120621
  5. INTERLEUKINS [Suspect]
     Indication: PROGRESSIVE MULTIFOCAL LEUKOENCEPHALOPATHY
     Route: 058
     Dates: start: 20120628
  6. TRUVADA [Suspect]
     Indication: HIV INFECTION
     Dosage: 0-0-1
     Route: 048
     Dates: start: 20120113, end: 20120802
  7. NORVIR [Suspect]
     Indication: HIV INFECTION
     Dosage: 0-0-1
     Route: 048
     Dates: start: 20120113, end: 20120802
  8. COUMADINE [Concomitant]
     Dosage: 6 TABLETS IN THE EVENING
     Route: 065
  9. CRESTOR [Concomitant]
     Dosage: 0-0-1
     Route: 065
  10. ODRIK [Concomitant]
     Dosage: 1-0-0
     Route: 065
  11. DIFFU-K [Concomitant]
     Dosage: (1-0-2)
     Route: 065
  12. WELLVONE [Concomitant]
     Dosage: 750 MG
     Route: 065

REACTIONS (3)
  - Condition aggravated [Fatal]
  - Progressive multifocal leukoencephalopathy [Fatal]
  - Immune reconstitution inflammatory syndrome [Fatal]
